FAERS Safety Report 4828787-4 (Version None)
Quarter: 2005Q4

REPORT INFORMATION
  Report Type: 
  Country: None (occurrence: None)
  Receive Date: 20051014
  Receipt Date: 20050822
  Transmission Date: 20060501
  Serious: No
  Sender: FDA-Public Use
  Company Number: 2005SP003160

PATIENT
  Age: 53 Year
  Sex: Male

DRUGS (3)
  1. LUNESTA [Suspect]
     Dosage: 2 MG; HS; ORAL, 1 MG; 1X; ORAL
     Route: 048
     Dates: start: 20050818, end: 20050101
  2. LUNESTA [Suspect]
     Dosage: 2 MG; HS; ORAL, 1 MG; 1X; ORAL
     Route: 048
     Dates: start: 20050821, end: 20050821
  3. KLONOPIN [Concomitant]

REACTIONS (1)
  - SOMNOLENCE [None]
